FAERS Safety Report 9778299 (Version 1)
Quarter: 2013Q4

REPORT INFORMATION
  Report Type: Spontaneous
  Country: AU (occurrence: AU)
  Receive Date: 20131223
  Receipt Date: 20131223
  Transmission Date: 20140711
  Serious: Yes (Hospitalization)
  Sender: FDA-Public Use
  Company Number: AU-009507513-1312AUS006726

PATIENT
  Sex: Male

DRUGS (2)
  1. RIBAVIRIN [Suspect]
     Dosage: UNK
     Route: 048
     Dates: start: 20131011
  2. PEGASYS [Suspect]
     Dosage: UNK
     Dates: start: 20131011

REACTIONS (1)
  - Depression [Unknown]
